FAERS Safety Report 17530325 (Version 2)
Quarter: 2020Q2

REPORT INFORMATION
  Report Type: Spontaneous
  Country: US (occurrence: US)
  Receive Date: 20200311
  Receipt Date: 20200406
  Transmission Date: 20200713
  Serious: Yes (Hospitalization, Other)
  Sender: FDA-Public Use
  Company Number: US-PFIZER INC-2020105588

PATIENT
  Age: 77 Year
  Sex: Female

DRUGS (2)
  1. METHOTREXATE SODIUM. [Suspect]
     Active Substance: METHOTREXATE SODIUM
     Indication: RHEUMATOID ARTHRITIS
     Dosage: 10 MG, WEEKLY (4 TABLETS)
  2. XELJANZ [Suspect]
     Active Substance: TOFACITINIB CITRATE
     Indication: RHEUMATOID ARTHRITIS
     Dosage: 5 MG, 2X/DAY
     Route: 048
     Dates: start: 20180525, end: 20200211

REACTIONS (12)
  - Intervertebral disc protrusion [Unknown]
  - Skin lesion [Unknown]
  - Pain [Unknown]
  - Mental status changes [Unknown]
  - Urinary tract infection [Unknown]
  - Meningoencephalitis herpetic [Unknown]
  - Confusional state [Unknown]
  - Herpes simplex encephalitis [Not Recovered/Not Resolved]
  - Back pain [Not Recovered/Not Resolved]
  - Meningitis [Unknown]
  - Hypoaesthesia [Unknown]
  - Asthenia [Recovering/Resolving]

NARRATIVE: CASE EVENT DATE: 20200227
